FAERS Safety Report 4488036-6 (Version None)
Quarter: 2004Q4

REPORT INFORMATION
  Report Type: 
  Country: None (occurrence: None)
  Receive Date: 20041025
  Receipt Date: 20041019
  Transmission Date: 20050328
  Serious: Yes (Death)
  Sender: FDA-Public Use
  Company Number: GB-JNJFOC-20041005769

PATIENT
  Age: 21 Year
  Sex: Female

DRUGS (5)
  1. ACETAMINOPHEN [Suspect]
  2. VENLAFAXINE (VENLAFAXINE) [Suspect]
  3. ZOLPIDEM TARTRATE [Suspect]
  4. MIRTAZAPINE [Suspect]
  5. PROPOXYPHENE HCL [Suspect]

REACTIONS (1)
  - ANALGESIC DRUG LEVEL INCREASED [None]
